FAERS Safety Report 9634085 (Version 2)
Quarter: 2014Q1

REPORT INFORMATION
  Report Type: Spontaneous
  Country: US (occurrence: US)
  Receive Date: 20131021
  Receipt Date: 20140126
  Transmission Date: 20141002
  Serious: No
  Sender: FDA-Public Use
  Company Number: US-009507513-1310USA003940

PATIENT
  Age: 35 Year
  Sex: Female
  Weight: 126.8 kg

DRUGS (2)
  1. NEXPLANON [Suspect]
     Dosage: 1 DF(1 ROD)
     Route: 059
     Dates: start: 20130930, end: 20130930
  2. NEXPLANON [Suspect]
     Dosage: 1 DF(1 ROD)
     Route: 059
     Dates: start: 20130930

REACTIONS (3)
  - Device expulsion [Recovered/Resolved]
  - Product quality issue [Unknown]
  - No adverse event [Unknown]
